FAERS Safety Report 7759264-9 (Version None)
Quarter: 2011Q3

REPORT INFORMATION
  Report Type: 
  Country: None (occurrence: None)
  Receive Date: 20110919
  Receipt Date: 20110914
  Transmission Date: 20111222
  Serious: Yes (Hospitalization)
  Sender: FDA-Public Use
  Company Number: CH-AMGEN-CHESP2011045081

PATIENT

DRUGS (1)
  1. NEULASTA [Suspect]
     Indication: PRODUCT USED FOR UNKNOWN INDICATION
     Dosage: 6 MG, QD
     Route: 058
     Dates: start: 20110701, end: 20110701

REACTIONS (5)
  - CHEST PAIN [None]
  - HYPOTENSION [None]
  - ABDOMINAL PAIN [None]
  - HYPERSENSITIVITY [None]
  - MALAISE [None]
